FAERS Safety Report 8790800 (Version 1)
Quarter: 2012Q4

REPORT INFORMATION
  Report Type: Spontaneous
  Country: US (occurrence: None)
  Receive Date: 20120912
  Receipt Date: 20120912
  Transmission Date: 20130627
  Serious: Yes (Life-Threatening, Hospitalization)
  Sender: FDA-Public Use
  Company Number: None

PATIENT
  Age: 76 Year
  Sex: Male
  Weight: 90.1 kg

DRUGS (2)
  1. VENLAFAXINE [Suspect]
     Indication: DEPRESSION
     Route: 048
     Dates: start: 20110913
  2. VENLAFAXINE [Suspect]
     Indication: HOT FLASHES
     Route: 048
     Dates: start: 20110913

REACTIONS (4)
  - Haemorrhage [None]
  - Hypertension [None]
  - Atrial fibrillation [None]
  - Electrocardiogram QT prolonged [None]
